FAERS Safety Report 17820195 (Version 2)
Quarter: 2020Q3

REPORT INFORMATION
  Report Type: Report from Study
  Country: None (occurrence: US)
  Receive Date: 20200525
  Receipt Date: 20200731
  Transmission Date: 20201102
  Serious: Yes (Hospitalization)
  Sender: FDA-Public Use
  Company Number: US-ABBVIE-20K-163-3413700-00

PATIENT
  Sex: Female
  Weight: 93.07 kg

DRUGS (2)
  1. HUMIRA [Suspect]
     Active Substance: ADALIMUMAB
     Indication: PSORIATIC ARTHROPATHY
     Route: 058
  2. HUMIRA [Suspect]
     Active Substance: ADALIMUMAB
     Indication: PSORIASIS

REACTIONS (6)
  - Feeling abnormal [Unknown]
  - Dizziness [Recovering/Resolving]
  - Blood potassium decreased [Recovered/Resolved]
  - Sciatica [Recovering/Resolving]
  - Blood magnesium decreased [Recovered/Resolved]
  - Vomiting [Recovering/Resolving]
